FAERS Safety Report 4626209-X (Version None)
Quarter: 2005Q2

REPORT INFORMATION
  Report Type: 
  Country: None (occurrence: None)
  Receive Date: 20050331
  Receipt Date: 20040625
  Transmission Date: 20051028
  Serious: Yes (Life-Threatening, Other)
  Sender: FDA-Public Use
  Company Number: 200413179BCC

PATIENT
  Age: 61 Year
  Sex: Female
  Weight: 72.5755 kg

DRUGS (3)
  1. ALEVE (CAPLET) [Suspect]
     Indication: PHARYNGOLARYNGEAL PAIN
     Dosage: 220 MG, QD, ORAL
     Route: 048
     Dates: start: 20040607
  2. AMOXIL [Suspect]
     Indication: PHARYNGOLARYNGEAL PAIN
  3. EFFEXOR [Concomitant]

REACTIONS (12)
  - ANAPHYLACTIC REACTION [None]
  - ANAPHYLACTIC SHOCK [None]
  - BLOOD PRESSURE IMMEASURABLE [None]
  - CONVULSION [None]
  - HYPOAESTHESIA ORAL [None]
  - LIP PAIN [None]
  - LOSS OF CONSCIOUSNESS [None]
  - NERVOUSNESS [None]
  - PRURITUS GENERALISED [None]
  - PULSE ABSENT [None]
  - SWELLING [None]
  - SWELLING FACE [None]
